FAERS Safety Report 15357875 (Version 1)
Quarter: 2018Q3

REPORT INFORMATION
  Report Type: Spontaneous
  Country: ES (occurrence: ES)
  Receive Date: 20180906
  Receipt Date: 20180906
  Transmission Date: 20181010
  Serious: Yes (Other)
  Sender: FDA-Public Use
  Company Number: PHHY2018ES062715

PATIENT
  Age: 8 Year
  Sex: Male

DRUGS (2)
  1. ACETYLSALICYLIC ACID [Suspect]
     Active Substance: ASPIRIN
     Indication: DRUG PROVOCATION TEST
     Dosage: 200 MG, ADMINISTERED AT INCREMENTAL DOSES AT AN INTERVAL OF 90 MINUTES ON 2
     Route: 048
  2. IBUPROFEN. [Suspect]
     Active Substance: IBUPROFEN
     Indication: PYREXIA
     Route: 065

REACTIONS (5)
  - Drug hypersensitivity [Unknown]
  - Therapeutic product cross-reactivity [Unknown]
  - Eye pruritus [Unknown]
  - Eyelid disorder [Unknown]
  - Angioedema [Unknown]
